FAERS Safety Report 8136667-4 (Version None)
Quarter: 2012Q1

REPORT INFORMATION
  Report Type: 
  Country: None (occurrence: None)
  Receive Date: 20120214
  Receipt Date: 20120209
  Transmission Date: 20120608
  Serious: Yes (Other)
  Sender: FDA-Public Use
  Company Number: CA-B.I. PHARMACEUTICALS,INC./RIDGEFIELD-2012-CN-00233CN

PATIENT
  Age: 54 Year
  Sex: Female

DRUGS (8)
  1. XYREM [Suspect]
     Dosage: 6 G
     Route: 048
  2. OXYCODONE/ACETAMINOPHEN [Concomitant]
     Route: 065
  3. DILTIAZEM HCL [Concomitant]
     Route: 065
  4. MEDICATION NOT FURTHER SPECIFIED [Concomitant]
     Indication: ABDOMINAL DISCOMFORT
  5. XYREM [Suspect]
     Dosage: 7.5 G
     Route: 048
  6. MICARDIS HCT [Suspect]
     Dosage: 0.5 RT
     Route: 048
  7. MICARDIS HCT [Suspect]
     Route: 048
  8. XYREM [Suspect]
     Dosage: 4.5 G
     Route: 048

REACTIONS (4)
  - FATIGUE [None]
  - DRUG INEFFECTIVE [None]
  - CHEST DISCOMFORT [None]
  - HEART RATE INCREASED [None]
